FAERS Safety Report 13141187 (Version 1)
Quarter: 2017Q1

REPORT INFORMATION
  Report Type: Spontaneous
  Country: US (occurrence: US)
  Receive Date: 20170123
  Receipt Date: 20170123
  Transmission Date: 20170428
  Serious: No
  Sender: FDA-Public Use
  Company Number: None

PATIENT
  Age: 75 Year
  Sex: Female

DRUGS (5)
  1. METHOTREXATE. [Suspect]
     Active Substance: METHOTREXATE
     Indication: RHEUMATOID ARTHRITIS
  2. METHOTREXATE. [Suspect]
     Active Substance: METHOTREXATE
     Indication: DIABETES MELLITUS
  3. METHOTREXATE. [Suspect]
     Active Substance: METHOTREXATE
     Indication: HYPERLIPIDAEMIA
  4. METHOTREXATE. [Suspect]
     Active Substance: METHOTREXATE
     Indication: ARTERIOSCLEROSIS CORONARY ARTERY
  5. METHOTREXATE. [Suspect]
     Active Substance: METHOTREXATE
     Indication: OSTEOPOROSIS

REACTIONS (2)
  - Activities of daily living impaired [None]
  - Pain [None]

NARRATIVE: CASE EVENT DATE: 20170123
